FAERS Safety Report 10046295 (Version 1)
Quarter: 2014Q1

REPORT INFORMATION
  Report Type: Spontaneous
  Country: US (occurrence: US)
  Receive Date: 20140331
  Receipt Date: 20140331
  Transmission Date: 20141002
  Serious: No
  Sender: FDA-Public Use
  Company Number: US-BIOGENIDEC-2014BI027053

PATIENT
  Age: 33 Year
  Sex: Female

DRUGS (5)
  1. TECFIDERA [Suspect]
     Indication: MULTIPLE SCLEROSIS
     Route: 048
     Dates: start: 20140302
  2. TECFIDERA [Suspect]
     Indication: MULTIPLE SCLEROSIS
     Dates: start: 20140310
  3. TECFIDERA [Suspect]
     Indication: MULTIPLE SCLEROSIS
  4. PRILOSEC [Concomitant]
     Indication: VOMITING
     Dates: start: 20140319
  5. PRILOSEC [Concomitant]
     Indication: NAUSEA
     Dates: start: 20140319

REACTIONS (4)
  - Malaise [Unknown]
  - Haematemesis [Recovered/Resolved]
  - Vomiting [Recovered/Resolved]
  - Nausea [Recovered/Resolved]
